FAERS Safety Report 7352345-3 (Version None)
Quarter: 2011Q1

REPORT INFORMATION
  Report Type: 
  Country: None (occurrence: None)
  Receive Date: 20110315
  Receipt Date: 20110307
  Transmission Date: 20110831
  Serious: Yes (Other)
  Sender: FDA-Public Use
  Company Number: US-ELI_LILLY_AND_COMPANY-US201008004482

PATIENT
  Sex: Female

DRUGS (8)
  1. FORTEO [Suspect]
     Dosage: 20 UG, DAILY (1/D)
     Dates: start: 20100731
  2. CALCIUM [Concomitant]
     Dates: end: 20100730
  3. FORTEO [Suspect]
     Indication: OSTEOPOROSIS
     Dosage: 20 UG, QOD
     Dates: start: 20100716
  4. FORTEO [Suspect]
     Dosage: 20 UG, DAILY (1/D)
  5. FORTEO [Suspect]
     Dosage: 20 UG, DAILY (1/D)
  6. PLAVIX [Concomitant]
     Dosage: UNK, UNKNOWN
  7. FORTEO [Suspect]
     Dosage: 20 UG, DAILY (1/D)
     Dates: end: 20110201
  8. ASPIRIN [Concomitant]
     Dosage: UNK, UNKNOWN

REACTIONS (13)
  - LUMBAR VERTEBRAL FRACTURE [None]
  - HYPOACUSIS [None]
  - BLOOD CALCIUM INCREASED [None]
  - INJECTION SITE RASH [None]
  - DRUG PRESCRIBING ERROR [None]
  - RENAL DISORDER [None]
  - CARDIAC OPERATION [None]
  - BONE PAIN [None]
  - SKIN INJURY [None]
  - INJECTION SITE HAEMATOMA [None]
  - ARTHRALGIA [None]
  - CHRONIC OBSTRUCTIVE PULMONARY DISEASE [None]
  - NAUSEA [None]
